FAERS Safety Report 10777248 (Version 1)
Quarter: 2015Q1

REPORT INFORMATION
  Report Type: Other
  Country: US (occurrence: US)
  Receive Date: 20150209
  Receipt Date: 20150209
  Transmission Date: 20150721
  Serious: Yes (Death)
  Sender: FDA-Public Use
  Company Number: US-FRI-1000074246

PATIENT
  Age: 48 Year
  Sex: Female

DRUGS (13)
  1. IBUPROFEN. [Suspect]
     Active Substance: IBUPROFEN
  2. LISINOPRIL. [Suspect]
     Active Substance: LISINOPRIL
  3. DICLOFENAC [Suspect]
     Active Substance: DICLOFENAC
  4. CLONIDINE. [Suspect]
     Active Substance: CLONIDINE
  5. ESCITALOPRAM [Suspect]
     Active Substance: ESCITALOPRAM OXALATE
  6. CYCLOBENZAPRINE [Suspect]
     Active Substance: CYCLOBENZAPRINE
  7. METOPROLOL [Suspect]
     Active Substance: METOPROLOL
  8. METHYLPREDNISOLONE. [Suspect]
     Active Substance: METHYLPREDNISOLONE
  9. OXYCODONE [Suspect]
     Active Substance: OXYCODONE
  10. NITROGLYCERIN. [Suspect]
     Active Substance: NITROGLYCERIN
  11. AZITHROMYCIN [Suspect]
     Active Substance: AZITHROMYCIN ANHYDROUS
  12. CEPHALEXIN. [Suspect]
     Active Substance: CEPHALEXIN
  13. DOXYCYCLINE. [Suspect]
     Active Substance: DOXYCYCLINE

REACTIONS (2)
  - Death [Fatal]
  - Cardio-respiratory arrest [Fatal]
